FAERS Safety Report 6172074-1 (Version None)
Quarter: 2009Q2

REPORT INFORMATION
  Report Type: 
  Country: None (occurrence: None)
  Receive Date: 20090428
  Receipt Date: 20090428
  Transmission Date: 20091009
  Serious: Yes (Life-Threatening, Hospitalization)
  Sender: FDA-Public Use
  Company Number: None

PATIENT
  Age: 49 Year
  Sex: Female
  Weight: 58.9676 kg

DRUGS (1)
  1. KAPIDEX [Suspect]
     Indication: DYSPEPSIA
     Dosage: 60 MG DAILY PO
     Route: 048
     Dates: start: 20090423, end: 20090423

REACTIONS (1)
  - ANAPHYLACTIC REACTION [None]
